FAERS Safety Report 8948231 (Version 1)
Quarter: 2012Q4

REPORT INFORMATION
  Report Type: Spontaneous
  Country: US (occurrence: None)
  Receive Date: 20121126
  Receipt Date: 20121126
  Transmission Date: 20130627
  Serious: Yes (Hospitalization, Disabling)
  Sender: FDA-Public Use
  Company Number: 1496847

PATIENT
  Age: 66 Year
  Sex: Female

DRUGS (6)
  1. KETOROLAC [Suspect]
     Indication: SPASMS
     Route: 030
  2. KETOROLAC [Suspect]
     Indication: SPASMS
     Route: 030
  3. KETOROLAC [Suspect]
     Indication: SPASMS
     Route: 030
  4. KETOROLAC [Suspect]
     Indication: SPASMS
     Route: 030
  5. SODIUM CHLORIDE [Concomitant]
  6. METHYLPREDNISOLONE [Concomitant]

REACTIONS (2)
  - Quadriplegia [None]
  - Extradural haematoma [None]
